FAERS Safety Report 10543693 (Version 5)
Quarter: 2015Q3

REPORT INFORMATION
  Report Type: Report from Study
  Country: DE (occurrence: DE)
  Receive Date: 20141027
  Receipt Date: 20150707
  Transmission Date: 20151125
  Serious: Yes (Hospitalization, Other)
  Sender: FDA-Public Use
  Company Number: DE-CELGENE-062-21880-14085732

PATIENT
  Age: 62 Year
  Sex: Male
  Weight: 62 kg

DRUGS (7)
  1. REVLIMID [Suspect]
     Active Substance: LENALIDOMIDE
     Indication: PLASMA CELL MYELOMA
     Route: 048
     Dates: start: 20120427, end: 20120625
  2. REVLIMID [Suspect]
     Active Substance: LENALIDOMIDE
     Dosage: MAINENANCE
     Route: 048
     Dates: start: 20120901, end: 20140813
  3. BORTEZOMIB [Suspect]
     Active Substance: BORTEZOMIB
     Indication: PLASMA CELL MYELOMA
     Route: 041
     Dates: start: 20110912, end: 20111117
  4. SILOMAT [Concomitant]
     Active Substance: CLOBUTINOL
     Indication: CHRONIC OBSTRUCTIVE PULMONARY DISEASE
     Route: 065
  5. ZOMETA [Concomitant]
     Active Substance: ZOLEDRONIC ACID
     Indication: PLASMA CELL MYELOMA
     Route: 041
     Dates: start: 20120813, end: 20141104
  6. SPIRIVA [Concomitant]
     Active Substance: TIOTROPIUM BROMIDE MONOHYDRATE
     Indication: CHRONIC OBSTRUCTIVE PULMONARY DISEASE
     Route: 065
  7. BORTEZOMIB [Suspect]
     Active Substance: BORTEZOMIB
     Route: 065
     Dates: start: 20090912, end: 20091126

REACTIONS (3)
  - Osteonecrosis of jaw [Recovered/Resolved]
  - Squamous cell carcinoma of lung [Recovered/Resolved]
  - Epiglottic carcinoma [Recovered/Resolved]

NARRATIVE: CASE EVENT DATE: 20140826
